FAERS Safety Report 19058734 (Version 3)
Quarter: 2021Q3

REPORT INFORMATION
  Report Type: Report from Study
  Country: US (occurrence: US)
  Receive Date: 20210325
  Receipt Date: 20210715
  Transmission Date: 20211014
  Serious: Yes (Other)
  Sender: FDA-Public Use
  Company Number: NVSC2021US060876

PATIENT
  Sex: Male

DRUGS (1)
  1. ENTRESTO [Suspect]
     Active Substance: SACUBITRIL\VALSARTAN
     Indication: PRODUCT USED FOR UNKNOWN INDICATION
     Dosage: UNK UNK, BID
     Route: 048

REACTIONS (9)
  - Skin discolouration [Unknown]
  - Prostatic disorder [Unknown]
  - Dyspnoea [Unknown]
  - Cardiovascular insufficiency [Unknown]
  - Gait disturbance [Unknown]
  - Joint stiffness [Unknown]
  - Dizziness [Unknown]
  - Syncope [Unknown]
  - Fatigue [Unknown]
